FAERS Safety Report 7371215-8 (Version None)
Quarter: 2011Q1

REPORT INFORMATION
  Report Type: 
  Country: None (occurrence: None)
  Receive Date: 20110324
  Receipt Date: 20110314
  Transmission Date: 20110831
  Serious: Yes (Other)
  Sender: FDA-Public Use
  Company Number: FR-JNJFOC-20110306656

PATIENT
  Age: 54 Year
  Sex: Male

DRUGS (3)
  1. DURAGESIC-100 [Suspect]
     Indication: FACIAL NEURALGIA
     Route: 062
  2. ACTIQ [Suspect]
     Route: 048
  3. ACTIQ [Suspect]
     Indication: FACIAL NEURALGIA
     Route: 048

REACTIONS (1)
  - DRUG DEPENDENCE [None]
